FAERS Safety Report 18378946 (Version 3)
Quarter: 2022Q1

REPORT INFORMATION
  Report Type: Spontaneous
  Country: AT (occurrence: AT)
  Receive Date: 20201014
  Receipt Date: 20220101
  Transmission Date: 20220423
  Serious: Yes (Hospitalization, Other)
  Sender: FDA-Public Use
  Company Number: AT-ROCHE-2688711

PATIENT
  Age: 62 Year
  Sex: Female
  Weight: 80 kg

DRUGS (58)
  1. TRASTUZUMAB [Suspect]
     Active Substance: TRASTUZUMAB
     Indication: HER2 positive breast cancer
     Dosage: 480 MILLIGRAM, Q3WK
     Route: 042
     Dates: start: 20170306
  2. TRASTUZUMAB [Suspect]
     Active Substance: TRASTUZUMAB
     Dosage: 600 MILLIGRAM, Q3WK
     Route: 058
     Dates: start: 20180904, end: 20180904
  3. TRASTUZUMAB [Suspect]
     Active Substance: TRASTUZUMAB
     Dosage: 600 MILLIGRAM, Q3WK
     Route: 058
     Dates: start: 20181023, end: 20190226
  4. TRASTUZUMAB [Suspect]
     Active Substance: TRASTUZUMAB
     Dosage: 600 MILLIGRAM, Q3WK
     Route: 058
     Dates: start: 20190527, end: 20190617
  5. TRASTUZUMAB [Suspect]
     Active Substance: TRASTUZUMAB
     Dosage: 600 MILLIGRAM, Q3WK
     Route: 058
     Dates: start: 20200507, end: 20200507
  6. PERTUZUMAB [Suspect]
     Active Substance: PERTUZUMAB
     Indication: HER2 positive breast cancer
     Dosage: 420 MILLIGRAM, Q3WK
     Route: 042
     Dates: start: 20170306
  7. LAPATINIB [Suspect]
     Active Substance: LAPATINIB
     Indication: HER2 positive breast cancer
     Dosage: 1000 MILLIGRAM
     Route: 048
     Dates: start: 20181227
  8. LAPATINIB [Suspect]
     Active Substance: LAPATINIB
     Dosage: 750 MILLIGRAM
     Route: 048
     Dates: start: 20190116, end: 20190206
  9. VINORELBINE [Suspect]
     Active Substance: VINORELBINE TARTRATE
     Indication: HER2 positive breast cancer
     Dosage: 50 MILLIGRAM, OTHER
     Route: 048
     Dates: start: 20170306
  10. ADO-TRASTUZUMAB EMTANSINE [Suspect]
     Active Substance: ADO-TRASTUZUMAB EMTANSINE
     Indication: HER2 positive breast cancer
     Dosage: `3.6 MILLIGRAM/SQ. METER, Q3WK
     Route: 042
     Dates: start: 20171212
  11. CAPECITABINE [Suspect]
     Active Substance: CAPECITABINE
     Indication: HER2 positive breast cancer
     Dosage: 3500 MILLIGRAM, QD
     Route: 048
     Dates: start: 20180904
  12. BAMBUTEROL HYDROCHLORIDE [Concomitant]
     Active Substance: BAMBUTEROL HYDROCHLORIDE
     Dosage: UNK
  13. ZOLPIDEM [Concomitant]
     Active Substance: ZOLPIDEM TARTRATE
     Dosage: UNK
     Dates: start: 20190215, end: 20190315
  14. LORAZEPAM [Concomitant]
     Active Substance: LORAZEPAM
     Dosage: UNK
     Dates: start: 20190226
  15. DEXAMETHASONE [Concomitant]
     Active Substance: DEXAMETHASONE
     Dosage: UNK
     Dates: start: 20170829, end: 20180813
  16. MIRTAZAPINE [Concomitant]
     Active Substance: MIRTAZAPINE
     Dosage: UNK
     Dates: start: 20190315, end: 20190907
  17. DEXAMETHASONE [Concomitant]
     Active Substance: DEXAMETHASONE
     Dosage: UNK
     Dates: start: 20170829, end: 20180813
  18. DEXAMETHASONE [Concomitant]
     Active Substance: DEXAMETHASONE
     Dosage: UNK
     Dates: start: 20180127, end: 20180313
  19. DEXAMETHASONE [Concomitant]
     Active Substance: DEXAMETHASONE
     Dosage: UNK
     Dates: start: 20190215, end: 20190907
  20. LOVENOX [Concomitant]
     Active Substance: ENOXAPARIN SODIUM
     Dosage: UNK
     Dates: start: 20180126, end: 20180208
  21. LOVENOX [Concomitant]
     Active Substance: ENOXAPARIN SODIUM
     Dosage: UNK
     Dates: start: 20190312, end: 20190315
  22. DOXYCYCLINE [Concomitant]
     Active Substance: DOXYCYCLINE
     Indication: Respiratory tract infection
     Dosage: UNK
     Dates: start: 20190502, end: 20190509
  23. VENLAFAXINE HYDROCHLORIDE [Concomitant]
     Active Substance: VENLAFAXINE HYDROCHLORIDE
     Dosage: UNK
     Dates: start: 20190315, end: 20190907
  24. ACETAMINOPHEN [Concomitant]
     Active Substance: ACETAMINOPHEN
     Dosage: UNK
     Dates: start: 20190327, end: 20190327
  25. METOCLOPRAMIDE HYDROCHLORIDE [Concomitant]
     Active Substance: METOCLOPRAMIDE HYDROCHLORIDE
     Dosage: UNK
     Dates: start: 20171212, end: 20190907
  26. TRAZODONE HYDROCHLORIDE [Concomitant]
     Active Substance: TRAZODONE HYDROCHLORIDE
     Dosage: UNK
  27. DIOSMIN\HESPERIDIN [Concomitant]
     Active Substance: DIOSMIN\HESPERIDIN
     Dosage: UNK
     Dates: end: 20190907
  28. BISOPROLOL FUMARATE [Concomitant]
     Active Substance: BISOPROLOL FUMARATE
     Dosage: UNK
     Dates: start: 20190907
  29. AMOXICILLIN\CLAVULANATE POTASSIUM [Concomitant]
     Active Substance: AMOXICILLIN\CLAVULANATE POTASSIUM
     Indication: Vascular device infection
     Dosage: UNK
     Dates: start: 20180215, end: 20180215
  30. DIMETHINDENE [Concomitant]
     Active Substance: DIMETHINDENE
     Indication: Chills
     Dosage: UNK
     Dates: start: 20170306, end: 20170306
  31. DIMETHINDENE [Concomitant]
     Active Substance: DIMETHINDENE
     Dosage: UNK
     Dates: start: 20170327, end: 20180313
  32. LYRICA [Concomitant]
     Active Substance: PREGABALIN
     Indication: Back pain
     Dosage: UNK
     Dates: start: 20181227, end: 20190226
  33. LYRICA [Concomitant]
     Active Substance: PREGABALIN
     Dosage: UNK
  34. PANTOPRAZOLE SODIUM [Concomitant]
     Active Substance: PANTOPRAZOLE SODIUM
     Dosage: UNK
     Dates: start: 20170302
  35. SUCRALFATE [Concomitant]
     Active Substance: SUCRALFATE
     Dosage: UNK
     Dates: start: 20190907
  36. NOVALGIN (METAMIZOLE SODIUM) [Concomitant]
     Active Substance: METAMIZOLE SODIUM
     Indication: Back pain
     Dosage: UNK
     Dates: start: 20171212, end: 20190907
  37. NOVALGIN (METAMIZOLE SODIUM) [Concomitant]
     Active Substance: METAMIZOLE SODIUM
     Indication: Respiratory tract infection
     Dosage: UNK
     Dates: start: 20190315, end: 20190907
  38. NOVALGIN (METAMIZOLE SODIUM) [Concomitant]
     Active Substance: METAMIZOLE SODIUM
     Indication: Hepatic pain
     Dosage: UNK
     Dates: start: 20190615, end: 20190615
  39. NOVALGIN (METAMIZOLE SODIUM) [Concomitant]
     Active Substance: METAMIZOLE SODIUM
     Dosage: UNK
     Dates: start: 20190509, end: 20190509
  40. NOVALGIN (METAMIZOLE SODIUM) [Concomitant]
     Active Substance: METAMIZOLE SODIUM
     Dosage: UNK
     Dates: start: 20170327
  41. BUPRENORPHINE [Concomitant]
     Active Substance: BUPRENORPHINE
     Dosage: UNK
  42. PARACODIN [DIHYDROCODEINE] [Concomitant]
     Indication: Cough
     Dosage: UNK
     Dates: start: 20171212, end: 20180115
  43. PARACODIN [DIHYDROCODEINE] [Concomitant]
     Dosage: UNK
     Dates: start: 20190510
  44. KYTRIL [Concomitant]
     Active Substance: GRANISETRON HYDROCHLORIDE
     Dosage: UNK
     Dates: start: 20171212, end: 20180813
  45. ZYRTEC [Concomitant]
     Active Substance: CETIRIZINE HYDROCHLORIDE
     Indication: Pruritus
     Dosage: UNK
     Dates: start: 20170327, end: 20171215
  46. LASIX [Concomitant]
     Active Substance: FUROSEMIDE
     Dosage: UNK
     Dates: start: 20190907
  47. HYDROMORPHONE HYDROCHLORIDE [Concomitant]
     Active Substance: HYDROMORPHONE HYDROCHLORIDE
     Indication: Back pain
     Dosage: UNK
     Dates: start: 20180403, end: 20180628
  48. HYDROMORPHONE HYDROCHLORIDE [Concomitant]
     Active Substance: HYDROMORPHONE HYDROCHLORIDE
     Dosage: UNK
     Dates: start: 20180628, end: 20190226
  49. HYDROMORPHONE HYDROCHLORIDE [Concomitant]
     Active Substance: HYDROMORPHONE HYDROCHLORIDE
     Dosage: UNK
     Dates: start: 20181227, end: 20190907
  50. AUGMENTIN [Concomitant]
     Active Substance: AMOXICILLIN\CLAVULANATE POTASSIUM
     Indication: Respiratory tract infection
     Dosage: UNK
     Dates: start: 20190509, end: 20190516
  51. LACTULOSE [Concomitant]
     Active Substance: LACTULOSE
     Dosage: UNK
     Dates: start: 20171212, end: 20190907
  52. EDOXABAN TOSYLATE [Concomitant]
     Active Substance: EDOXABAN TOSYLATE
     Indication: Pulmonary embolism
     Dosage: UNK
     Dates: start: 20190315, end: 20190907
  53. CITRIC ACID MONOHYDRATE\POTASSIUM BICARBONATE\POTASSIUM CITRATE [Concomitant]
     Active Substance: CITRIC ACID MONOHYDRATE\POTASSIUM BICARBONATE\POTASSIUM CITRATE
     Dosage: UNK
  54. EMEND [Concomitant]
     Active Substance: APREPITANT
     Dosage: UNK
     Dates: start: 20180127, end: 20180815
  55. RANITIDINE HYDROCHLORIDE [Concomitant]
     Active Substance: RANITIDINE HYDROCHLORIDE
     Indication: Chills
     Dosage: UNK
     Dates: start: 20170306, end: 20170306
  56. RANITIDINE HYDROCHLORIDE [Concomitant]
     Active Substance: RANITIDINE HYDROCHLORIDE
     Dosage: UNK
     Dates: start: 20170327, end: 20180813
  57. PREDNISOLONE SODIUM SUCCINATE [Concomitant]
     Active Substance: PREDNISOLONE SODIUM SUCCINATE
     Indication: Chills
     Dosage: UNK
     Dates: start: 20170306, end: 20170306
  58. CORTISONE ACETATE [Concomitant]
     Active Substance: CORTISONE ACETATE
     Indication: Respiratory tract infection
     Dosage: UNK
     Dates: start: 20190615, end: 20190615

REACTIONS (3)
  - Respiratory tract infection [Recovered/Resolved]
  - Dyspnoea [Not Recovered/Not Resolved]
  - Off label use [Unknown]

NARRATIVE: CASE EVENT DATE: 20190415
